FAERS Safety Report 20381387 (Version 1)
Quarter: 2022Q1

REPORT INFORMATION
  Report Type: Spontaneous
  Country: US (occurrence: US)
  Receive Date: 20220127
  Receipt Date: 20220127
  Transmission Date: 20220423
  Serious: No
  Sender: FDA-Public Use
  Company Number: US-GLENMARK PHARMACEUTICALS-2021GMK068215

PATIENT

DRUGS (7)
  1. CARVEDILOL [Suspect]
     Active Substance: CARVEDILOL
     Indication: Cardiomyopathy
     Dosage: 50 MILLIGRAM, BID (2 TIMES A DAY)
     Route: 048
  2. ROSUVASTATIN CALCIUM [Suspect]
     Active Substance: ROSUVASTATIN CALCIUM
     Indication: Blood cholesterol increased
     Dosage: 20 MILLIGRAM, OD (ONCE A DAY)
     Route: 048
  3. COREG [Suspect]
     Active Substance: CARVEDILOL
     Indication: Product used for unknown indication
     Dosage: UNK
     Route: 065
  4. BENAZEPRIL [Concomitant]
     Active Substance: BENAZEPRIL HYDROCHLORIDE
     Indication: Hypertension
     Dosage: 10 MILLIGRAM, QD (ONCE DAILY)
     Route: 048
  5. OMEPRAZOLE [Concomitant]
     Active Substance: OMEPRAZOLE
     Indication: Gastrooesophageal reflux disease
     Dosage: 40 MILLIGRAM, QD (ONCE DAILY)
     Route: 048
  6. XARELTO [Concomitant]
     Active Substance: RIVAROXABAN
     Indication: Atrial fibrillation
     Dosage: 20 MILLIGRAM, OD (ONCE A DAY)
     Route: 048
  7. DIGOXIN [Concomitant]
     Active Substance: DIGOXIN
     Indication: Product used for unknown indication
     Dosage: UNK
     Route: 048

REACTIONS (4)
  - Hair texture abnormal [Unknown]
  - Oropharyngeal pain [Unknown]
  - Trichorrhexis [Unknown]
  - Alopecia [Unknown]
